FAERS Safety Report 14558550 (Version 1)
Quarter: 2018Q1

REPORT INFORMATION
  Report Type: Spontaneous
  Country: US (occurrence: US)
  Receive Date: 20180220
  Receipt Date: 20180220
  Transmission Date: 20180509
  Serious: Yes (Hospitalization)
  Sender: FDA-Public Use
  Company Number: None

PATIENT
  Age: 27 Year
  Sex: Male

DRUGS (2)
  1. AVASTIN [Concomitant]
     Active Substance: BEVACIZUMAB
  2. TEMOZOLOMIDE CAP 250MG [Suspect]
     Active Substance: TEMOZOLOMIDE

REACTIONS (1)
  - Migraine [None]

NARRATIVE: CASE EVENT DATE: 20180216
